FAERS Safety Report 11012278 (Version 1)
Quarter: 2015Q2

REPORT INFORMATION
  Report Type: Spontaneous
  Country: US (occurrence: None)
  Receive Date: 20150410
  Receipt Date: 20150410
  Transmission Date: 20150821
  Serious: Yes (Other)
  Sender: FDA-Public Use
  Company Number: None

PATIENT
  Age: 64 Year
  Sex: Female

DRUGS (1)
  1. HUMIRA [Suspect]
     Active Substance: ADALIMUMAB
     Indication: PSORIATIC ARTHROPATHY
     Dosage: 40MG? INJECTABLE ?EVERY 2 WEEKS?SUBCUTANEOUS ?
     Route: 058
     Dates: start: 201503

REACTIONS (2)
  - Dizziness [None]
  - Headache [None]

NARRATIVE: CASE EVENT DATE: 20150317
